FAERS Safety Report 10066332 (Version 1)
Quarter: 2014Q2

REPORT INFORMATION
  Report Type: Spontaneous
  Country: DE (occurrence: DE)
  Receive Date: 20140408
  Receipt Date: 20140408
  Transmission Date: 20141212
  Serious: Yes (Life-Threatening)
  Sender: FDA-Public Use
  Company Number: DE-ACTAVIS-2013-25073

PATIENT
  Age: 42 Year
  Sex: Female
  Weight: 75 kg

DRUGS (2)
  1. PACLITAXEL ACTAVIS [Suspect]
     Indication: OVARIAN CANCER
     Dosage: 332 MG, UNKNOWN
     Route: 042
     Dates: start: 20130312, end: 20130312
  2. PACLITAXEL ACTAVIS [Suspect]
     Dosage: 328.1 MG, UNKNOWN
     Route: 042
     Dates: start: 20130402, end: 20130402

REACTIONS (3)
  - Anaphylactic reaction [Recovered/Resolved]
  - Dyspnoea [Recovered/Resolved]
  - Cyanosis [Recovered/Resolved]
